FAERS Safety Report 15124423 (Version 1)
Quarter: 2018Q3

REPORT INFORMATION
  Report Type: Spontaneous
  Country: US (occurrence: US)
  Receive Date: 20180613
  Receipt Date: 20180613
  Transmission Date: 20181010
  Serious: Yes (Hospitalization)
  Sender: FDA-Public Use
  Company Number: None

PATIENT
  Age: 75 Year
  Sex: Female
  Weight: 61.2 kg

DRUGS (6)
  1. RECLAST [Suspect]
     Active Substance: ZOLEDRONIC ACID
     Indication: OSTEOPOROSIS
     Route: 042
     Dates: start: 20180322, end: 20180322
  2. SYNTHROID [Concomitant]
     Active Substance: LEVOTHYROXINE SODIUM
  3. MULTI VITAMIN [Concomitant]
     Active Substance: VITAMINS
  4. CHOLESTERIUM [Concomitant]
  5. VITAMIN D [Concomitant]
     Active Substance: CHOLECALCIFEROL
  6. CQ10 [Concomitant]
     Active Substance: UBIDECARENONE

REACTIONS (6)
  - Pain [None]
  - Peripheral swelling [None]
  - Pain in extremity [None]
  - Gait inability [None]
  - Musculoskeletal disorder [None]
  - Infusion [None]

NARRATIVE: CASE EVENT DATE: 20180322
